FAERS Safety Report 8437368-5 (Version None)
Quarter: 2012Q2

REPORT INFORMATION
  Report Type: 
  Country: None (occurrence: None)
  Receive Date: 20120614
  Receipt Date: 20120314
  Transmission Date: 20120825
  Serious: No
  Sender: FDA-Public Use
  Company Number: US-AMGEN-USASP2012013208

PATIENT
  Age: 75 Year
  Sex: Female
  Weight: 52.154 kg

DRUGS (4)
  1. CALCIUM [Concomitant]
     Dosage: UNK
  2. GARLIC [Concomitant]
     Dosage: UNK
  3. PROLIA [Suspect]
     Indication: OSTEOPOROSIS POSTMENOPAUSAL
     Dosage: UNK UNK, Q6MO
     Dates: start: 20110803, end: 20110803
  4. VITAMIN D [Concomitant]
     Dosage: UNK

REACTIONS (6)
  - ABDOMINAL PAIN UPPER [None]
  - SKIN DISORDER [None]
  - MYALGIA [None]
  - DIARRHOEA [None]
  - PAIN [None]
  - ACNE [None]
